FAERS Safety Report 12215527 (Version 2)
Quarter: 2019Q4

REPORT INFORMATION
  Report Type: Spontaneous
  Country: DE (occurrence: DE)
  Receive Date: 20160328
  Receipt Date: 20191216
  Transmission Date: 20200122
  Serious: Yes (Other)
  Sender: FDA-Public Use
  Company Number: DE-TEVA-645528GER

PATIENT
  Age: 38 Year
  Sex: Female
  Weight: 80.9 kg

DRUGS (3)
  1. OLANZAPINE. [Suspect]
     Active Substance: OLANZAPINE
     Indication: SCHIZOPHRENIA
     Dosage: 10 MILLIGRAM DAILY;
     Route: 048
     Dates: start: 20150222, end: 20151130
  2. FOLIO [Concomitant]
     Active Substance: FOLIC ACID
     Indication: PROPHYLAXIS OF NEURAL TUBE DEFECT
     Dosage: .4 MILLIGRAM DAILY;
     Route: 048
     Dates: start: 20150222, end: 20151115
  3. CEFUROXIM [Concomitant]
     Active Substance: CEFUROXIME
     Indication: PREMATURE RUPTURE OF MEMBRANES
     Dosage: 4500 [MG/D ]
     Route: 041
     Dates: start: 20151130, end: 20151130

REACTIONS (3)
  - Maternal exposure during pregnancy [Unknown]
  - Gestational diabetes [Recovered/Resolved]
  - Normal newborn [Unknown]
